FAERS Safety Report 14940662 (Version 1)
Quarter: 2018Q2

REPORT INFORMATION
  Report Type: Spontaneous
  Country: US (occurrence: US)
  Receive Date: 20180525
  Receipt Date: 20180525
  Transmission Date: 20180711
  Serious: No
  Sender: FDA-Public Use
  Company Number: US-SEBELA IRELAND LIMITED-2018SEB00097

PATIENT
  Sex: Female

DRUGS (2)
  1. UNKNOWN MEDICATION [Suspect]
     Active Substance: UNSPECIFIED INGREDIENT
     Dosage: UNK
  2. ONMEL [Suspect]
     Active Substance: ITRACONAZOLE
     Dosage: UNK

REACTIONS (3)
  - Rash [Unknown]
  - Alopecia [Unknown]
  - Skin lesion [Unknown]
